FAERS Safety Report 11893702 (Version 2)
Quarter: 2016Q1

REPORT INFORMATION
  Report Type: Report from Study
  Country: US (occurrence: US)
  Receive Date: 20160106
  Receipt Date: 20160128
  Transmission Date: 20160526
  Serious: Yes (Hospitalization, Other)
  Sender: FDA-Public Use
  Company Number: US-GILEAD-2015-0190495

PATIENT
  Age: 72 Year
  Sex: Female

DRUGS (1)
  1. IDELALISIB [Suspect]
     Active Substance: IDELALISIB
     Indication: B-CELL LYMPHOMA
     Dosage: 150 MG, QD
     Route: 048
     Dates: start: 201512

REACTIONS (6)
  - Erythema [Unknown]
  - Thrombosis [Unknown]
  - Gait disturbance [Unknown]
  - Nausea [Recovered/Resolved]
  - Fall [Unknown]
  - Peripheral swelling [Unknown]

NARRATIVE: CASE EVENT DATE: 2015
